FAERS Safety Report 15110667 (Version 1)
Quarter: 2018Q2

REPORT INFORMATION
  Report Type: Spontaneous
  Country: US (occurrence: US)
  Receive Date: 20180612
  Receipt Date: 20180612
  Transmission Date: 20180711
  Serious: Yes (Hospitalization)
  Sender: FDA-Public Use
  Company Number: None

PATIENT
  Age: 55 Year
  Sex: Male
  Weight: 48.8 kg

DRUGS (1)
  1. XARELTO [Suspect]
     Active Substance: RIVAROXABAN
     Indication: DEEP VEIN THROMBOSIS
     Dosage: RECENT RESTART
     Route: 048

REACTIONS (3)
  - Iron deficiency anaemia [None]
  - Intra-abdominal haemorrhage [None]
  - Embolism arterial [None]

NARRATIVE: CASE EVENT DATE: 20180313
